FAERS Safety Report 5061129-0 (Version None)
Quarter: 2006Q3

REPORT INFORMATION
  Report Type: 
  Country: None (occurrence: None)
  Receive Date: 20060725
  Receipt Date: 20060714
  Transmission Date: 20061208
  Serious: Yes (Hospitalization)
  Sender: FDA-Public Use
  Company Number: DE-SANOFI-SYNTHELABO-A04200600713

PATIENT
  Sex: Male

DRUGS (2)
  1. INEGY [Suspect]
     Indication: HYPERCHOLESTEROLAEMIA
     Dosage: UNK
     Route: 048
     Dates: start: 20060501, end: 20060601
  2. PLAVIX [Suspect]
     Indication: CORONARY ARTERY DISEASE
     Route: 048
     Dates: start: 20060101, end: 20060601

REACTIONS (6)
  - ANOREXIA [None]
  - BLOOD CREATININE INCREASED [None]
  - FATIGUE [None]
  - HEPATITIS [None]
  - RENAL FAILURE [None]
  - RHABDOMYOLYSIS [None]
